FAERS Safety Report 11769601 (Version 5)
Quarter: 2016Q1

REPORT INFORMATION
  Report Type: Spontaneous
  Country: US (occurrence: US)
  Receive Date: 20151123
  Receipt Date: 20160108
  Transmission Date: 20160525
  Serious: Yes (Other)
  Sender: FDA-Public Use
  Company Number: US-SA-2015SA056760

PATIENT
  Age: 63 Year
  Sex: Male

DRUGS (6)
  1. APIDRA SOLOSTAR [Suspect]
     Active Substance: INSULIN GLULISINE
     Indication: DIABETES MELLITUS
     Dosage: FREQUENCY:MEALTIIMES?DOSE: SLIDING SCALE
     Route: 065
  2. APIDRA SOLOSTAR [Suspect]
     Active Substance: INSULIN GLULISINE
     Indication: DIABETES MELLITUS
     Dosage: FREQUENCY:MEALTIIMES?DOSE: SLIDING SCALE
     Route: 065
  3. SOLOSTAR [Concomitant]
     Active Substance: DEVICE
  4. APIDRA SOLOSTAR [Suspect]
     Active Substance: INSULIN GLULISINE
     Indication: DIABETES MELLITUS
     Dosage: START DATE: FEW YEARS?DOSE: SLIDING SCALE
     Route: 065
  5. APIDRA SOLOSTAR [Suspect]
     Active Substance: INSULIN GLULISINE
     Indication: DIABETES MELLITUS
     Dosage: START DATE: FEW YEARS?DOSE: SLIDING SCALE
     Route: 065
  6. SOLOSTAR [Concomitant]
     Active Substance: DEVICE

REACTIONS (5)
  - Surgery [Unknown]
  - Drug ineffective [Unknown]
  - Malaise [Not Recovered/Not Resolved]
  - Blood glucose increased [Not Recovered/Not Resolved]
  - Wrong technique in product usage process [Unknown]
